FAERS Safety Report 21823406 (Version 1)
Quarter: 2023Q1

REPORT INFORMATION
  Report Type: Report from Study
  Country: PA (occurrence: PA)
  Receive Date: 20230105
  Receipt Date: 20230105
  Transmission Date: 20230417
  Serious: Yes (Death)
  Sender: FDA-Public Use
  Company Number: PA-BIOGEN-2023BI01179220

PATIENT
  Age: 57 Year
  Sex: Female

DRUGS (2)
  1. TYSABRI [Suspect]
     Active Substance: NATALIZUMAB
     Indication: Relapsing multiple sclerosis
     Route: 050
     Dates: start: 2011, end: 20221218
  2. GABAPENTIN [Concomitant]
     Active Substance: GABAPENTIN
     Indication: Pain
     Route: 050
     Dates: end: 20221230

REACTIONS (1)
  - Multiple organ dysfunction syndrome [Fatal]
